FAERS Safety Report 24041765 (Version 1)
Quarter: 2024Q3

REPORT INFORMATION
  Report Type: Spontaneous
  Country: US (occurrence: US)
  Receive Date: 20240702
  Receipt Date: 20240702
  Transmission Date: 20241016
  Serious: No
  Sender: SAREPTA THERAPEUTICS
  Company Number: US-SAREPTA THERAPEUTICS INC.-SRP2024-004431

PATIENT
  Age: 13 Year
  Sex: Male
  Weight: 48.526 kg

DRUGS (2)
  1. EXONDYS 51 [Suspect]
     Active Substance: ETEPLIRSEN
     Indication: Duchenne muscular dystrophy
     Dosage: 1500 MILLIGRAM, WEEKLY
     Route: 042
     Dates: end: 20240216
  2. EXONDYS 51 [Suspect]
     Active Substance: ETEPLIRSEN
     Dosage: 1500 MILLIGRAM, WEEKLY
     Route: 042
     Dates: start: 20240308

REACTIONS (4)
  - Patient uncooperative [Unknown]
  - Catheter site swelling [Recovered/Resolved]
  - Weight increased [Unknown]
  - Device issue [Unknown]

NARRATIVE: CASE EVENT DATE: 20240301
